FAERS Safety Report 24743521 (Version 1)
Quarter: 2024Q4

REPORT INFORMATION
  Report Type: Spontaneous
  Country: US (occurrence: None)
  Receive Date: 20241216
  Receipt Date: 20241216
  Transmission Date: 20250115
  Serious: Yes (Disabling)
  Sender: Public
  Company Number: None

PATIENT
  Age: 53 Year
  Sex: Female
  Weight: 72 kg

DRUGS (2)
  1. DULOXETINE [Suspect]
     Active Substance: DULOXETINE
     Indication: Fibromyalgia
     Dosage: OTHER QUANTITY : 60 CAPSULE(S);?FREQUENCY : TWICE A DAY;?
     Route: 048
     Dates: start: 20231201, end: 20241201
  2. LEVOTHYROXINE [Suspect]
     Active Substance: LEVOTHYROXINE

REACTIONS (4)
  - Headache [None]
  - Abdominal pain upper [None]
  - Anal incontinence [None]
  - Sensory disturbance [None]

NARRATIVE: CASE EVENT DATE: 20231215
